FAERS Safety Report 17204349 (Version 1)
Quarter: 2019Q4

REPORT INFORMATION
  Report Type: Spontaneous
  Country: US (occurrence: US)
  Receive Date: 20191226
  Receipt Date: 20191226
  Transmission Date: 20200122
  Serious: Yes (Hospitalization)
  Sender: FDA-Public Use
  Company Number: US-ACTELION-A-NJ2019-198416

PATIENT
  Sex: Female

DRUGS (5)
  1. ADEMPAS [Concomitant]
     Active Substance: RIOCIGUAT
  2. ELIQUIS [Concomitant]
     Active Substance: APIXABAN
  3. VELETRI [Suspect]
     Active Substance: EPOPROSTENOL
     Indication: PULMONARY ARTERIAL HYPERTENSION
     Dosage: 12 NG/KG, PER MIN
     Route: 042
  4. AMBRISENTAN [Concomitant]
     Active Substance: AMBRISENTAN
  5. ORENITRAM [Concomitant]
     Active Substance: TREPROSTINIL

REACTIONS (3)
  - Catheter management [Unknown]
  - Device dislocation [Unknown]
  - Fatigue [Unknown]
